FAERS Safety Report 5692317-8 (Version None)
Quarter: 2008Q1

REPORT INFORMATION
  Report Type: 
  Country: None (occurrence: None)
  Receive Date: 20080331
  Receipt Date: 20080317
  Transmission Date: 20080703
  Serious: Yes (Hospitalization)
  Sender: FDA-Public Use
  Company Number: S08-FRA-01194-01

PATIENT
  Age: 85 Year
  Sex: Female

DRUGS (12)
  1. MEMANTINE HCL [Suspect]
     Indication: DEMENTIA ALZHEIMER'S TYPE
     Dosage: 5 MG QD PO
     Route: 048
     Dates: start: 20080207, end: 20080226
  2. MEMANTINE HCL [Suspect]
     Indication: DEMENTIA ALZHEIMER'S TYPE
     Dosage: 10 MG QD PO
     Route: 048
     Dates: start: 20080227
  3. ....................... [Concomitant]
  4. ARICEPT [Suspect]
     Indication: DEMENTIA ALZHEIMER'S TYPE
     Dosage: 10 MG QD PO
     Route: 048
     Dates: start: 20080205, end: 20080226
  5. ARICEPT [Suspect]
     Indication: DEMENTIA ALZHEIMER'S TYPE
     Dosage: 5 MG QD PO
     Route: 048
     Dates: start: 20060101, end: 20080204
  6. HEMIGOXINE NATIVELLE (DIGOXIN) [Concomitant]
  7. LEVOTHYROXINE SODIUM [Concomitant]
  8. AERIUS [Concomitant]
  9. KARDEGIC             (ACETYLSALICYLATE LYSINE) [Concomitant]
  10. PANTOPRAZOLE SODIUM [Concomitant]
  11. STER-DEX [Concomitant]
  12. VITAMIN A [Concomitant]

REACTIONS (5)
  - ABNORMAL BEHAVIOUR [None]
  - FACIAL PALSY [None]
  - GENERAL PHYSICAL HEALTH DETERIORATION [None]
  - MONOPLEGIA [None]
  - SYNCOPE [None]
